FAERS Safety Report 7878021-6 (Version None)
Quarter: 2011Q4

REPORT INFORMATION
  Report Type: 
  Country: None (occurrence: None)
  Receive Date: 20111031
  Receipt Date: 20111028
  Transmission Date: 20120403
  Serious: Yes (Other)
  Sender: FDA-Public Use
  Company Number: US-AMGEN-USASP2011038257

PATIENT
  Sex: Female

DRUGS (2)
  1. ENBREL [Suspect]
     Indication: RHEUMATOID ARTHRITIS
     Dosage: 50 MG, QWK
     Dates: start: 20080601
  2. ENBREL [Suspect]
     Dosage: 50 MG, QWK

REACTIONS (17)
  - PARAESTHESIA [None]
  - MALAISE [None]
  - DRUG INEFFECTIVE [None]
  - SJOGREN'S SYNDROME [None]
  - VOMITING [None]
  - PLATELET COUNT DECREASED [None]
  - ABDOMINAL PAIN UPPER [None]
  - DIZZINESS [None]
  - ABSCESS ORAL [None]
  - INCREASED TENDENCY TO BRUISE [None]
  - MOOD SWINGS [None]
  - TOOTH DISORDER [None]
  - WEIGHT DECREASED [None]
  - DRY MOUTH [None]
  - COUGH [None]
  - FATIGUE [None]
  - TENDONITIS [None]
